FAERS Safety Report 11568124 (Version 1)
Quarter: 2015Q3

REPORT INFORMATION
  Report Type: Spontaneous
  Country: US (occurrence: US)
  Receive Date: 20150916
  Receipt Date: 20150916
  Transmission Date: 20151125
  Serious: No
  Sender: FDA-Public Use
  Company Number: US-ELI_LILLY_AND_COMPANY-US200908000892

PATIENT
  Age: 67 Year
  Sex: Female

DRUGS (32)
  1. ATROVENT [Concomitant]
     Active Substance: IPRATROPIUM BROMIDE
  2. VITAMIN B [Concomitant]
     Active Substance: VITAMIN B
  3. MSM [Concomitant]
     Active Substance: DIMETHYL SULFONE
  4. L-CARNITINE [Concomitant]
     Active Substance: LEVOCARNITINE
  5. FISH OIL [Concomitant]
     Active Substance: FISH OIL
  6. IGG [Concomitant]
     Active Substance: HUMAN IMMUNOGLOBULIN G
  7. PREVACID [Concomitant]
     Active Substance: LANSOPRAZOLE
  8. LIDOCAINE/00033401/ [Concomitant]
  9. MAGNESIUM [Concomitant]
     Active Substance: MAGNESIUM
  10. MAXAIR [Concomitant]
     Active Substance: PIRBUTEROL ACETATE
  11. TOPAMAX [Concomitant]
     Active Substance: TOPIRAMATE
  12. ACIDOPHILUS [Concomitant]
     Active Substance: LACTOBACILLUS ACIDOPHILUS
  13. MULTIVITAMIN [Concomitant]
     Active Substance: VITAMINS
  14. ALPHA LIPOIC ACID [Concomitant]
     Active Substance: .ALPHA.-LIPOIC ACID
  15. CHROMIUM [Concomitant]
     Active Substance: CHROMIC CHLORIDE\CHROMIUM
  16. COD LIVER OIL [Concomitant]
     Active Substance: COD LIVER OIL
  17. ASPIRIN LOW DOSE [Concomitant]
     Active Substance: ASPIRIN
  18. SINGULAIR [Concomitant]
     Active Substance: MONTELUKAST SODIUM
  19. HYDROCHLOROTHIAZIDE. [Concomitant]
     Active Substance: HYDROCHLOROTHIAZIDE
  20. DOMPERIDONE [Concomitant]
     Active Substance: DOMPERIDONE
  21. ZYRTEC [Concomitant]
     Active Substance: CETIRIZINE HYDROCHLORIDE
  22. LEVOTHYROXINE. [Concomitant]
     Active Substance: LEVOTHYROXINE
  23. POTASSIUM CHLORIDE. [Concomitant]
     Active Substance: POTASSIUM CHLORIDE
  24. DEMEROL [Concomitant]
     Active Substance: MEPERIDINE HYDROCHLORIDE
  25. VITAMIN D [Concomitant]
     Active Substance: CHOLECALCIFEROL
  26. RESTASIS [Concomitant]
     Active Substance: CYCLOSPORINE
  27. ADDERALL [Concomitant]
     Active Substance: AMPHETAMINE ASPARTATE\AMPHETAMINE SULFATE\DEXTROAMPHETAMINE SACCHARATE\DEXTROAMPHETAMINE SULFATE
  28. CINNAMON. [Concomitant]
     Active Substance: CINNAMON
  29. FORTEO [Suspect]
     Active Substance: TERIPARATIDE
     Dosage: 20 UG, DAILY (1/D)
     Dates: start: 200902
  30. NASONEX [Concomitant]
     Active Substance: MOMETASONE FUROATE
  31. ASTELIN [Concomitant]
     Active Substance: AZELASTINE HYDROCHLORIDE
  32. CITRUCEL [Concomitant]
     Active Substance: METHYLCELLULOSE (4000 MPA.S)

REACTIONS (4)
  - Injection site pain [Unknown]
  - Injection site haemorrhage [Unknown]
  - Aspartate aminotransferase increased [Not Recovered/Not Resolved]
  - Injection site mass [Recovered/Resolved]

NARRATIVE: CASE EVENT DATE: 200906
